FAERS Safety Report 24391039 (Version 3)
Quarter: 2024Q4

REPORT INFORMATION
  Report Type: Report from Study
  Country: CN (occurrence: CN)
  Receive Date: 20241003
  Receipt Date: 20241018
  Transmission Date: 20250115
  Serious: Yes (Hospitalization, Other)
  Sender: BIOGEN
  Company Number: CN-BAT-2024BAT000840

PATIENT
  Age: 67 Year
  Sex: Male
  Weight: 50.7 kg

DRUGS (9)
  1. TOFIDENCE [Suspect]
     Active Substance: TOCILIZUMAB-BAVI
     Indication: Prophylaxis
     Dosage: ONCE ONLY
     Route: 041
     Dates: start: 20240904, end: 20240904
  2. INVESTIGATIONAL PRODUCT [Suspect]
     Active Substance: INVESTIGATIONAL PRODUCT
     Indication: Hepatic cancer
     Dosage: ONCE ONLY
     Route: 041
     Dates: start: 20240904, end: 20240904
  3. Ademetionine 1,4- Butanedisulfonate [Concomitant]
     Indication: Hepatic function abnormal
     Route: 048
     Dates: start: 20240905, end: 20240919
  4. OMEPRAZOLE [Concomitant]
     Active Substance: OMEPRAZOLE
     Indication: Premedication
     Route: 048
     Dates: start: 20240906, end: 20240920
  5. DOMPERIDONE [Concomitant]
     Active Substance: DOMPERIDONE
     Indication: Premedication
     Route: 048
     Dates: start: 20240906, end: 20240920
  6. TENOFOVIR ALAFENAMIDE FUMARATE [Concomitant]
     Active Substance: TENOFOVIR ALAFENAMIDE FUMARATE
     Indication: Hepatic function abnormal
     Route: 048
     Dates: start: 20240906, end: 20240920
  7. NIFEDIPINE [Concomitant]
     Active Substance: NIFEDIPINE
     Indication: Blood pressure management
     Route: 048
     Dates: start: 20240906, end: 20240920
  8. ONDANSETRON [Concomitant]
     Active Substance: ONDANSETRON
     Indication: Vomiting
     Route: 048
     Dates: start: 20240906, end: 20240920
  9. BICYCLOL [Concomitant]
     Active Substance: BICYCLOL
     Indication: Hepatic function abnormal
     Dosage: 25 MF
     Route: 048
     Dates: start: 20240905, end: 20240919

REACTIONS (3)
  - Ascites [Not Recovered/Not Resolved]
  - Pneumonia [Not Recovered/Not Resolved]
  - Off label use [Unknown]

NARRATIVE: CASE EVENT DATE: 20240904
